FAERS Safety Report 8239860-5 (Version None)
Quarter: 2012Q1

REPORT INFORMATION
  Report Type: 
  Country: None (occurrence: None)
  Receive Date: 20120328
  Receipt Date: 20120319
  Transmission Date: 20120608
  Serious: Yes (Hospitalization, Other)
  Sender: FDA-Public Use
  Company Number: PHHY2012DE025013

PATIENT
  Age: 53 Year
  Sex: Male

DRUGS (4)
  1. GLEEVEC [Suspect]
     Indication: GASTROINTESTINAL STROMAL TUMOUR
     Route: 048
     Dates: start: 20070717
  2. CERTICAN [Concomitant]
     Dosage: 2 MG, UNK
  3. GLEEVEC [Suspect]
     Dosage: 400 MG, UNK
  4. GLEEVEC [Suspect]
     Dates: start: 20071210, end: 20080601

REACTIONS (7)
  - TRANSAMINASES INCREASED [None]
  - NEOPLASM PROGRESSION [None]
  - ILEUS [None]
  - LIVER DISORDER [None]
  - HEPATIC STEATOSIS [None]
  - NEOPLASM MALIGNANT [None]
  - HEPATIC FIBROSIS [None]
